FAERS Safety Report 7177764-X (Version None)
Quarter: 2010Q4

REPORT INFORMATION
  Report Type: 
  Country: None (occurrence: None)
  Receive Date: 20101220
  Receipt Date: 20101215
  Transmission Date: 20110411
  Serious: Yes (Death, Hospitalization, Other)
  Sender: FDA-Public Use
  Company Number: GR-PFIZER INC-2010172494

PATIENT
  Age: 60 Year
  Sex: Male

DRUGS (1)
  1. SUTENT [Suspect]
     Indication: RENAL CANCER
     Dosage: 50 MG, 1X/DAY (4WKS ON/2WKS OFF)
     Route: 048
     Dates: start: 20090101

REACTIONS (9)
  - ALTERED STATE OF CONSCIOUSNESS [None]
  - ANURIA [None]
  - DISEASE PROGRESSION [None]
  - FATIGUE [None]
  - HEPATIC FAILURE [None]
  - ORGAN FAILURE [None]
  - RENAL CANCER METASTATIC [None]
  - RENAL FAILURE ACUTE [None]
  - RHABDOMYOLYSIS [None]
